FAERS Safety Report 8115391-8 (Version None)
Quarter: 2012Q1

REPORT INFORMATION
  Report Type: 
  Country: None (occurrence: None)
  Receive Date: 20120206
  Receipt Date: 20120206
  Transmission Date: 20120608
  Serious: Yes (Death)
  Sender: FDA-Public Use
  Company Number: None

PATIENT
  Age: 56 Year
  Sex: Male
  Weight: 65.77 kg

DRUGS (1)
  1. GILENYA [Suspect]
     Indication: MULTIPLE SCLEROSIS
     Dosage: 1 PILL
     Dates: start: 20110601, end: 20111004

REACTIONS (7)
  - AGITATION [None]
  - PARANOIA [None]
  - WEIGHT DECREASED [None]
  - INSOMNIA [None]
  - DECREASED INTEREST [None]
  - COMPLETED SUICIDE [None]
  - DECREASED APPETITE [None]
